FAERS Safety Report 4427367-2 (Version None)
Quarter: 2004Q3

REPORT INFORMATION
  Report Type: 
  Country: None (occurrence: None)
  Receive Date: 20040817
  Receipt Date: 20040210
  Transmission Date: 20050211
  Serious: No
  Sender: FDA-Public Use
  Company Number: US-GLAXOSMITHKLINE-A0497777A

PATIENT
  Age: 35 Year
  Sex: Male

DRUGS (1)
  1. EPIVIR-HBV [Suspect]
     Dosage: 100MG PER DAY
     Route: 048

REACTIONS (6)
  - DIZZINESS [None]
  - INFLUENZA LIKE ILLNESS [None]
  - INSOMNIA [None]
  - PHARMACEUTICAL PRODUCT COMPLAINT [None]
  - PHOTOSENSITIVITY REACTION [None]
  - SEDATION [None]
